FAERS Safety Report 6434344-9 (Version None)
Quarter: 2009Q4

REPORT INFORMATION
  Report Type: 
  Country: None (occurrence: None)
  Receive Date: 20091110
  Receipt Date: 20080917
  Transmission Date: 20100525
  Serious: Yes (Other)
  Sender: FDA-Public Use
  Company Number: US-ASTRAZENECA-2008UW19312

PATIENT
  Age: 78 Year
  Sex: Male
  Weight: 113.4 kg

DRUGS (2)
  1. PRILOSEC OTC [Suspect]
     Indication: GASTROOESOPHAGEAL REFLUX DISEASE
     Route: 048
     Dates: start: 20080401
  2. PRILOSEC OTC [Suspect]
     Route: 048
     Dates: start: 20080401

REACTIONS (2)
  - ANAEMIA [None]
  - LEUKOPENIA [None]
